FAERS Safety Report 6373458-9 (Version None)
Quarter: 2009Q3

REPORT INFORMATION
  Report Type: 
  Country: None (occurrence: None)
  Receive Date: 20090924
  Receipt Date: 20090313
  Transmission Date: 20100115
  Serious: No
  Sender: FDA-Public Use
  Company Number: US-ASTRAZENECA-2009UW06685

PATIENT
  Age: 45 Year
  Sex: Male

DRUGS (1)
  1. SEROQUEL [Suspect]
     Route: 048
     Dates: end: 20010101

REACTIONS (7)
  - AURA [None]
  - BLOOD IMMUNOGLOBULIN A INCREASED [None]
  - CENTRAL NERVOUS SYSTEM STIMULATION [None]
  - FATIGUE [None]
  - INSULIN RESISTANCE [None]
  - TREMOR [None]
  - WEIGHT INCREASED [None]
